FAERS Safety Report 4814035-8 (Version None)
Quarter: 2005Q4

REPORT INFORMATION
  Report Type: 
  Country: None (occurrence: None)
  Receive Date: 20051028
  Receipt Date: 20050527
  Transmission Date: 20060501
  Serious: No
  Sender: FDA-Public Use
  Company Number: US-GLAXOSMITHKLINE-A0560398A

PATIENT
  Sex: Female

DRUGS (3)
  1. SEREVENT [Suspect]
     Dosage: 1PAT TWICE PER DAY
     Route: 055
     Dates: start: 20040101
  2. SYNTHROID [Concomitant]
  3. ATIVAN [Concomitant]

REACTIONS (2)
  - FEELING HOT [None]
  - PHARMACEUTICAL PRODUCT COMPLAINT [None]
